FAERS Safety Report 14561730 (Version 1)
Quarter: 2018Q1

REPORT INFORMATION
  Report Type: Report from Study
  Country: DE (occurrence: DE)
  Receive Date: 20180222
  Receipt Date: 20180222
  Transmission Date: 20180509
  Serious: Yes (Death, Life-Threatening, Hospitalization, Other)
  Sender: FDA-Public Use
  Company Number: DE-ADIENNEP-2018AD000099

PATIENT
  Age: 53 Year
  Sex: Male
  Weight: 100 kg

DRUGS (5)
  1. CYTARABINE. [Suspect]
     Active Substance: CYTARABINE
     Indication: NODULAR LYMPHOCYTE PREDOMINANT HODGKIN LYMPHOMA
     Dosage: 400 MG (1-0-1)
     Route: 042
     Dates: start: 20161111, end: 20161114
  2. ETOPOSIDE. [Suspect]
     Active Substance: ETOPOSIDE
     Indication: NODULAR LYMPHOCYTE PREDOMINANT HODGKIN LYMPHOMA
     Dosage: 400 MG (1-0-0)
     Route: 042
     Dates: start: 20161115, end: 20161115
  3. ETOPOSIDE. [Suspect]
     Active Substance: ETOPOSIDE
     Indication: NODULAR LYMPHOCYTE PREDOMINANT HODGKIN LYMPHOMA
     Dosage: 400 MG (1-0-1)
     Route: 042
     Dates: start: 20161111, end: 20161114
  4. MELPHALAN. [Suspect]
     Active Substance: MELPHALAN
     Indication: NODULAR LYMPHOCYTE PREDOMINANT HODGKIN LYMPHOMA
     Dosage: 280 MG (1-0-1)
     Route: 042
     Dates: start: 20161115, end: 20161115
  5. TEPADINA [Suspect]
     Active Substance: THIOTEPA
     Indication: NODULAR LYMPHOCYTE PREDOMINANT HODGKIN LYMPHOMA
     Dosage: 480 MG
     Route: 042
     Dates: start: 20161111, end: 20161111

REACTIONS (12)
  - Thrombocytopenia [Not Recovered/Not Resolved]
  - Vomiting [Recovered/Resolved]
  - Hepatic failure [Not Recovered/Not Resolved]
  - Blood creatine increased [Not Recovered/Not Resolved]
  - Acute kidney injury [Not Recovered/Not Resolved]
  - Anaemia [Not Recovered/Not Resolved]
  - Abdominal pain [Unknown]
  - Nausea [Recovered/Resolved]
  - Diarrhoea [Recovered/Resolved]
  - Leukopenia [Recovered/Resolved]
  - Febrile neutropenia [Recovered/Resolved]
  - Mucosal inflammation [Not Recovered/Not Resolved]

NARRATIVE: CASE EVENT DATE: 20161113
